FAERS Safety Report 7298799-2 (Version None)
Quarter: 2011Q1

REPORT INFORMATION
  Report Type: 
  Country: None (occurrence: None)
  Receive Date: 20110217
  Receipt Date: 20110204
  Transmission Date: 20110831
  Serious: Yes (Death, Hospitalization)
  Sender: FDA-Public Use
  Company Number: US-ROCHE-753403

PATIENT
  Sex: Female

DRUGS (3)
  1. XELODA [Suspect]
     Route: 048
     Dates: start: 20081001
  2. HERCEPTIN [Suspect]
     Route: 042
     Dates: start: 20100128
  3. HERCEPTIN [Suspect]
     Route: 042
     Dates: start: 20071129

REACTIONS (4)
  - METASTASES TO CENTRAL NERVOUS SYSTEM [None]
  - METASTASES TO LIVER [None]
  - DEATH [None]
  - METASTASES TO BONE [None]
